FAERS Safety Report 23443111 (Version 1)
Quarter: 2024Q1

REPORT INFORMATION
  Report Type: Spontaneous
  Country: US (occurrence: US)
  Receive Date: 20240125
  Receipt Date: 20240125
  Transmission Date: 20240410
  Serious: Yes (Death, Other)
  Sender: FDA-Public Use
  Company Number: US-TEVA-VS-3141626

PATIENT
  Age: 50 Year
  Sex: Male

DRUGS (1)
  1. AUSTEDO [Suspect]
     Active Substance: DEUTETRABENAZINE
     Indication: Tardive dyskinesia
     Dosage: PATIENT WAS NOT SURE 12 MG OR 9 MG
     Route: 065
     Dates: start: 2022

REACTIONS (3)
  - Death [Fatal]
  - Drug ineffective [Unknown]
  - Seizure [Unknown]
